FAERS Safety Report 9332372 (Version 1)
Quarter: 2013Q2

REPORT INFORMATION
  Report Type: Spontaneous
  Country: US (occurrence: US)
  Receive Date: 20130606
  Receipt Date: 20130606
  Transmission Date: 20140414
  Serious: Yes (Hospitalization, Other)
  Sender: FDA-Public Use
  Company Number: PHEH2013US012077

PATIENT
  Age: 34 Year
  Sex: Female

DRUGS (3)
  1. GILENYA [Suspect]
     Indication: MULTIPLE SCLEROSIS
     Dosage: 0.5 MG, QD
     Route: 048
     Dates: start: 20110501
  2. TIZANIDINE [Concomitant]
  3. AMBIEN [Concomitant]

REACTIONS (6)
  - Grand mal convulsion [Unknown]
  - Dysarthria [Unknown]
  - Confusional state [Unknown]
  - Incontinence [Unknown]
  - Tongue biting [Unknown]
  - Blood creatine phosphokinase increased [Unknown]
